FAERS Safety Report 26123118 (Version 1)
Quarter: 2025Q4

REPORT INFORMATION
  Report Type: Spontaneous
  Country: EU (occurrence: EU)
  Receive Date: 20251204
  Receipt Date: 20251204
  Transmission Date: 20260117
  Serious: Yes (Hospitalization)
  Sender: MERCK SHARP & DOHME LLC
  Company Number: None

PATIENT
  Age: 83 Year
  Sex: Female

DRUGS (1)
  1. PEMBROLIZUMAB [Suspect]
     Active Substance: PEMBROLIZUMAB
     Indication: Lung adenocarcinoma
     Route: 042
     Dates: start: 20240610, end: 20251003

REACTIONS (3)
  - Acute kidney injury [Recovering/Resolving]
  - Colitis [Recovering/Resolving]
  - Chronic respiratory failure [Recovering/Resolving]

NARRATIVE: CASE EVENT DATE: 20251003
